FAERS Safety Report 5863262-X (Version None)
Quarter: 2008Q3

REPORT INFORMATION
  Report Type: 
  Country: None (occurrence: None)
  Receive Date: 20080828
  Receipt Date: 20080813
  Transmission Date: 20090109
  Serious: Yes (Death, Other)
  Sender: FDA-Public Use
  Company Number: JP-ROCHE-560332

PATIENT
  Sex: Male

DRUGS (9)
  1. PEGASYS [Suspect]
     Indication: HEPATITIS C
     Route: 058
     Dates: start: 20071009, end: 20071110
  2. PEGASYS [Suspect]
     Dosage: DOSE DECREASED.
     Route: 058
     Dates: start: 20071117, end: 20071124
  3. PEGASYS [Suspect]
     Route: 058
     Dates: start: 20071201, end: 20071213
  4. RIBAVIRIN [Suspect]
     Indication: HEPATITIS C
     Route: 048
     Dates: start: 20071009, end: 20071213
  5. FAMOTIDINE [Concomitant]
     Dosage: FORM: ORAL FORMULATION (NOT OTHERWISE SPECIFIED)
     Route: 048
     Dates: end: 20071223
  6. ATELEC [Concomitant]
     Route: 048
  7. ALOSENN [Concomitant]
     Route: 048
  8. VITAMEDIN [Concomitant]
     Dosage: FORM: ORAL FORMULATION (NOT OTHERWISE SPECIFIED)
     Route: 048
  9. URSO 250 [Concomitant]
     Dosage: FORM: ORAL FORMULATION (NOT OTHER WISE SPECIFIED)
     Route: 048

REACTIONS (6)
  - AGGRESSION [None]
  - ANAEMIA [None]
  - DEPRESSION [None]
  - OESOPHAGEAL VARICES HAEMORRHAGE [None]
  - PLATELET COUNT DECREASED [None]
  - WHITE BLOOD CELL COUNT DECREASED [None]
